FAERS Safety Report 17473343 (Version 3)
Quarter: 2020Q2

REPORT INFORMATION
  Report Type: Spontaneous
  Country: US (occurrence: US)
  Receive Date: 20200228
  Receipt Date: 20200519
  Transmission Date: 20200713
  Serious: Yes (Hospitalization)
  Sender: FDA-Public Use
  Company Number: US-GLAXOSMITHKLINE-US2020032219

PATIENT
  Sex: Female

DRUGS (1)
  1. ADVAIR DISKUS [Suspect]
     Active Substance: FLUTICASONE PROPIONATE\SALMETEROL XINAFOATE
     Indication: DYSPNOEA
     Dosage: 1 PUFF(S), BID
     Route: 065
     Dates: start: 201912

REACTIONS (5)
  - Dyspnoea [Recovered/Resolved]
  - Chronic obstructive pulmonary disease [Recovered/Resolved]
  - Ill-defined disorder [Unknown]
  - Influenza [Recovered/Resolved]
  - Product complaint [Unknown]
